FAERS Safety Report 13495182 (Version 1)
Quarter: 2017Q2

REPORT INFORMATION
  Report Type: Spontaneous
  Country: US (occurrence: US)
  Receive Date: 20170427
  Receipt Date: 20170427
  Transmission Date: 20170830
  Serious: Yes (Disabling)
  Sender: FDA-Public Use
  Company Number: None

PATIENT
  Age: 46 Year
  Sex: Female
  Weight: 56.75 kg

DRUGS (2)
  1. WELLBUTRIN [Concomitant]
     Active Substance: BUPROPION HYDROCHLORIDE
  2. MIRENA [Suspect]
     Active Substance: LEVONORGESTREL

REACTIONS (9)
  - Muscle spasms [None]
  - Feeling abnormal [None]
  - Chest pain [None]
  - Anger [None]
  - Emotional disorder [None]
  - Vaginal haemorrhage [None]
  - Arthralgia [None]
  - Lymphadenopathy [None]
  - Pain [None]

NARRATIVE: CASE EVENT DATE: 20161223
